FAERS Safety Report 9681206 (Version 1)
Quarter: 2013Q4

REPORT INFORMATION
  Report Type: Spontaneous
  Country: US (occurrence: US)
  Receive Date: 20131111
  Receipt Date: 20131111
  Transmission Date: 20140711
  Serious: No
  Sender: FDA-Public Use
  Company Number: US-009507513-1310USA011294

PATIENT
  Sex: Female

DRUGS (1)
  1. IVEMEND [Suspect]
     Indication: CHEMOTHERAPY
     Dosage: UNK
     Route: 042
     Dates: start: 201310

REACTIONS (1)
  - Back pain [Unknown]
